FAERS Safety Report 8616472-2 (Version None)
Quarter: 2012Q3

REPORT INFORMATION
  Report Type: 
  Country: None (occurrence: None)
  Receive Date: 20120823
  Receipt Date: 20120816
  Transmission Date: 20120928
  Serious: Yes (Hospitalization, Other)
  Sender: FDA-Public Use
  Company Number: US-009507513-1204USA01363

PATIENT

DRUGS (4)
  1. CALCIUM (UNSPECIFIED) [Concomitant]
     Route: 048
  2. FOSAMAX [Suspect]
     Indication: OSTEOPENIA
  3. FOSAMAX [Suspect]
     Indication: OSTEOPOROSIS
     Route: 048
     Dates: start: 19950101, end: 20100101
  4. VITAMINS (UNSPECIFIED) [Concomitant]
     Route: 048

REACTIONS (24)
  - FALL [None]
  - HAEMOGLOBIN DECREASED [None]
  - FEMUR FRACTURE [None]
  - TYPE 1 DIABETES MELLITUS [None]
  - IMPAIRED HEALING [None]
  - OSTEOARTHRITIS [None]
  - OPEN REDUCTION OF FRACTURE [None]
  - HAEMATOCRIT DECREASED [None]
  - PERONEAL NERVE PALSY [None]
  - CHRONIC LYMPHOCYTIC LEUKAEMIA [None]
  - LOW TURNOVER OSTEOPATHY [None]
  - AORTIC CALCIFICATION [None]
  - HYPERTENSION [None]
  - HYPERCHOLESTEROLAEMIA [None]
  - BURSITIS [None]
  - ARTHRALGIA [None]
  - DEVICE FAILURE [None]
  - PERIPHERAL VASCULAR DISORDER [None]
  - VOMITING [None]
  - FRACTURE NONUNION [None]
  - SPINAL OSTEOARTHRITIS [None]
  - MUSCULAR WEAKNESS [None]
  - HIP FRACTURE [None]
  - CHOLECYSTECTOMY [None]
